FAERS Safety Report 23949137 (Version 1)
Quarter: 2024Q2

REPORT INFORMATION
  Report Type: Spontaneous
  Country: US (occurrence: US)
  Receive Date: 20240607
  Receipt Date: 20240607
  Transmission Date: 20240715
  Serious: No
  Sender: FDA-Public Use
  Company Number: US-009507513-2405USA003557

PATIENT
  Sex: Female

DRUGS (2)
  1. INVANZ [Suspect]
     Active Substance: ERTAPENEM SODIUM
     Indication: Endocarditis bacterial
     Dosage: UNK
  2. CEFAZOLIN [Suspect]
     Active Substance: CEFAZOLIN
     Indication: Endocarditis bacterial
     Dosage: UNK

REACTIONS (1)
  - Product use in unapproved indication [Unknown]
